FAERS Safety Report 12822858 (Version 3)
Quarter: 2017Q3

REPORT INFORMATION
  Report Type: Spontaneous
  Country: US (occurrence: US)
  Receive Date: 20161006
  Receipt Date: 20170718
  Transmission Date: 20171127
  Serious: Yes (Other)
  Sender: FDA-Public Use
  Company Number: US-AMGEN-USASP2016009078

PATIENT
  Age: 75 Year
  Sex: Female

DRUGS (1)
  1. PROLIA [Suspect]
     Active Substance: DENOSUMAB
     Indication: OSTEOPOROSIS POSTMENOPAUSAL
     Dosage: 60 MG, Q6MO
     Route: 058
     Dates: start: 20150609

REACTIONS (10)
  - Chest pain [Unknown]
  - Musculoskeletal chest pain [Unknown]
  - Costochondritis [Recovered/Resolved]
  - Discomfort [Not Recovered/Not Resolved]
  - Hyponatraemia [Unknown]
  - Uterine prolapse [Unknown]
  - Nipple pain [Unknown]
  - Inflammation [Unknown]
  - Cystitis [Unknown]
  - Myalgia [Unknown]

NARRATIVE: CASE EVENT DATE: 201512
